FAERS Safety Report 24379585 (Version 3)
Quarter: 2025Q1

REPORT INFORMATION
  Report Type: Spontaneous
  Country: US (occurrence: US)
  Receive Date: 20240930
  Receipt Date: 20250207
  Transmission Date: 20250409
  Serious: Yes (Other)
  Sender: ASTELLAS
  Company Number: US-ASTELLAS-2024-AER-008593

PATIENT
  Age: 84 Year
  Sex: Female
  Weight: 46 kg

DRUGS (3)
  1. MYRBETRIQ [Suspect]
     Active Substance: MIRABEGRON
     Indication: Hypertonic bladder
     Dosage: 50MG ONCE DAILY
     Route: 048
     Dates: start: 20240916, end: 202411
  2. NATTOKINASE [Suspect]
     Active Substance: NATTOKINASE
     Indication: Product used for unknown indication
     Route: 065
     Dates: start: 202409
  3. AZITHROMYCIN [Suspect]
     Active Substance: AZITHROMYCIN
     Indication: Product used for unknown indication
     Route: 065
     Dates: start: 202312

REACTIONS (12)
  - Cardiac flutter [Recovered/Resolved]
  - Blood pressure decreased [Recovered/Resolved]
  - Constipation [Unknown]
  - Rash pruritic [Recovered/Resolved]
  - Weight decreased [Recovering/Resolving]
  - Urine output increased [Unknown]
  - Pollakiuria [Unknown]
  - Dehydration [Unknown]
  - Gastrointestinal inflammation [Unknown]
  - Dysbiosis [Unknown]
  - Discomfort [Unknown]
  - Therapeutic product effect incomplete [Unknown]

NARRATIVE: CASE EVENT DATE: 20240901
